FAERS Safety Report 16851810 (Version 3)
Quarter: 2019Q4

REPORT INFORMATION
  Report Type: Report from Study
  Country: US (occurrence: US)
  Receive Date: 20190925
  Receipt Date: 20191206
  Transmission Date: 20200122
  Serious: Yes (Hospitalization, Other)
  Sender: FDA-Public Use
  Company Number: US-GILEAD-2019-0430271

PATIENT
  Age: 83 Year
  Sex: Male

DRUGS (20)
  1. CORTIZONE-10 [HYDROCORTISONE ACETATE] [Concomitant]
  2. HYDROXYZINE [Concomitant]
     Active Substance: HYDROXYZINE HYDROCHLORIDE
  3. ACETAMINOPHEN. [Concomitant]
     Active Substance: ACETAMINOPHEN
  4. OMEGA-3 [DOCOSAHEXAENOIC ACID;EICOSAPENTAENOIC ACID] [Concomitant]
     Active Substance: DOCONEXENT\ICOSAPENT
  5. CENTRUM SILVER +50 [Concomitant]
  6. FUROSEMIDE. [Concomitant]
     Active Substance: FUROSEMIDE
  7. HYDROXYZINE HCL [Concomitant]
     Active Substance: HYDROXYZINE HYDROCHLORIDE
  8. LUTEIN [XANTOFYL] [Concomitant]
  9. CLONAZEPAM. [Concomitant]
     Active Substance: CLONAZEPAM
  10. HYDRALAZINE [Concomitant]
     Active Substance: HYDRALAZINE HYDROCHLORIDE
  11. ISOSORBIDE DINITRATE. [Concomitant]
     Active Substance: ISOSORBIDE DINITRATE
  12. VOLTAREN [DICLOFENAC EPOLAMINE] [Concomitant]
     Active Substance: DICLOFENAC EPOLAMINE
  13. POTASSIUM [Concomitant]
     Active Substance: POTASSIUM
  14. AMBRISENTAN [Suspect]
     Active Substance: AMBRISENTAN
     Indication: PULMONARY HYPERTENSION
     Dosage: 5 MG, QD
     Route: 065
  15. ATENOLOL. [Concomitant]
     Active Substance: ATENOLOL
  16. FISH OIL [Concomitant]
     Active Substance: FISH OIL
  17. MAGNESIUM [Concomitant]
     Active Substance: MAGNESIUM
  18. MONTELUKAST [Concomitant]
     Active Substance: MONTELUKAST SODIUM
  19. XARELTO [Concomitant]
     Active Substance: RIVAROXABAN
  20. ZINC. [Concomitant]
     Active Substance: ZINC

REACTIONS (9)
  - Nephrolithiasis [Recovered/Resolved]
  - Bladder perforation [Recovered/Resolved]
  - Haemorrhage [Unknown]
  - Pulmonary arterial hypertension [Not Recovered/Not Resolved]
  - Dyspnoea [Not Recovered/Not Resolved]
  - Gait disturbance [Unknown]
  - Intentional dose omission [Recovered/Resolved]
  - Thrombosis [Recovered/Resolved]
  - Haematochezia [Unknown]

NARRATIVE: CASE EVENT DATE: 201905
